FAERS Safety Report 6510826-6 (Version None)
Quarter: 2009Q4

REPORT INFORMATION
  Report Type: 
  Country: None (occurrence: None)
  Receive Date: 20091222
  Receipt Date: 20090123
  Transmission Date: 20100525
  Serious: No
  Sender: FDA-Public Use
  Company Number: US-ASTRAZENECA-2009UW02135

PATIENT
  Age: 23121 Day
  Sex: Female
  Weight: 73.5 kg

DRUGS (6)
  1. CRESTOR [Suspect]
     Indication: BLOOD CHOLESTEROL INCREASED
     Route: 048
     Dates: start: 20070601
  2. NOVOXIL [Concomitant]
  3. ZETIA [Concomitant]
  4. CALCIUM CITRATE [Concomitant]
  5. VITAMIN D [Concomitant]
  6. FISH OIL [Concomitant]

REACTIONS (4)
  - AGEUSIA [None]
  - COUGH [None]
  - NASAL CONGESTION [None]
  - PAIN [None]
